FAERS Safety Report 23890585 (Version 2)
Quarter: 2024Q2

REPORT INFORMATION
  Report Type: Spontaneous
  Country: US (occurrence: US)
  Receive Date: 20240523
  Receipt Date: 20240618
  Transmission Date: 20240715
  Serious: No
  Sender: FDA-Public Use
  Company Number: US-INCYTE CORPORATION-2024IN005287

PATIENT

DRUGS (2)
  1. JAKAFI [Suspect]
     Active Substance: RUXOLITINIB
     Indication: Myelofibrosis
     Dosage: 20 MILLIGRAM, BID
     Route: 048
  2. JAKAFI [Suspect]
     Active Substance: RUXOLITINIB
     Dosage: 20 MILLIGRAM, BID
     Route: 048
     Dates: start: 202404

REACTIONS (8)
  - Pain [Unknown]
  - Decreased activity [Unknown]
  - Fatigue [Unknown]
  - Asthenia [Unknown]
  - Hepatic enzyme increased [Unknown]
  - Rash macular [Unknown]
  - Nausea [Unknown]
  - Contusion [Unknown]
